FAERS Safety Report 15955927 (Version 1)
Quarter: 2019Q1

REPORT INFORMATION
  Report Type: Spontaneous
  Country: DE (occurrence: DE)
  Receive Date: 20190213
  Receipt Date: 20190213
  Transmission Date: 20190417
  Serious: Yes (Hospitalization, Other)
  Sender: FDA-Public Use
  Company Number: DE-TEVA-2019-DE-1010296

PATIENT
  Age: 66 Year
  Sex: Female

DRUGS (3)
  1. ATORVASTATIN-RATIOPHARM 20 MG FILMTABLETTEN [Suspect]
     Active Substance: ATORVASTATIN
     Route: 048
     Dates: start: 20190115, end: 20190128
  2. PREDNISOLON 40 MG [Concomitant]
     Indication: AUTOIMMUNE HEPATITIS
  3. AZATHIOPRIN 50 MG [Concomitant]
     Active Substance: AZATHIOPRINE
     Indication: AUTOIMMUNE HEPATITIS
     Dates: end: 2019

REACTIONS (13)
  - Skin discolouration [Not Recovered/Not Resolved]
  - Blood glucose increased [Unknown]
  - Blister [Not Recovered/Not Resolved]
  - Erythema [Not Recovered/Not Resolved]
  - Skin exfoliation [Not Recovered/Not Resolved]
  - Pyrexia [Not Recovered/Not Resolved]
  - Loss of consciousness [Recovered/Resolved]
  - Haematoma [Not Recovered/Not Resolved]
  - Pain of skin [Not Recovered/Not Resolved]
  - Liver function test increased [Unknown]
  - Haemorrhage [Not Recovered/Not Resolved]
  - Arthralgia [Not Recovered/Not Resolved]
  - Inflammation [Not Recovered/Not Resolved]

NARRATIVE: CASE EVENT DATE: 2019
